FAERS Safety Report 14150295 (Version 1)
Quarter: 2017Q4

REPORT INFORMATION
  Report Type: Spontaneous
  Country: GB (occurrence: GB)
  Receive Date: 20171101
  Receipt Date: 20171101
  Transmission Date: 20180321
  Serious: Yes (Life-Threatening, Hospitalization)
  Sender: FDA-Public Use
  Company Number: GB-ABBVIE-17P-167-2150116-00

PATIENT

DRUGS (1)
  1. DEPAKOTE [Suspect]
     Active Substance: DIVALPROEX SODIUM
     Indication: PRODUCT USED FOR UNKNOWN INDICATION
     Route: 065

REACTIONS (7)
  - Suicide attempt [Unknown]
  - Hyperammonaemia [Unknown]
  - Overdose [Unknown]
  - Coma [Unknown]
  - Hepatic enzyme increased [Not Recovered/Not Resolved]
  - Loss of consciousness [Unknown]
  - Depression [Unknown]
